FAERS Safety Report 8096347-0 (Version None)
Quarter: 2012Q1

REPORT INFORMATION
  Report Type: 
  Country: None (occurrence: None)
  Receive Date: 20120131
  Receipt Date: 20120118
  Transmission Date: 20120608
  Serious: Yes (Death)
  Sender: FDA-Public Use
  Company Number: JP-UCBSA-048366

PATIENT
  Age: 65 Year
  Sex: Male

DRUGS (6)
  1. MUCODYNE [Concomitant]
     Dosage: TOTAL DAILY DOSE : 1500 MG
     Route: 048
     Dates: start: 20111011, end: 20111113
  2. ALLOPURINOL [Concomitant]
     Dosage: TOTAL DAILY DOSE : 100 MG
     Route: 048
     Dates: start: 20110929, end: 20111113
  3. WYSTAL [Concomitant]
     Dosage: TOTAL DAILY DOSE : 1 G
     Route: 041
     Dates: start: 20111015, end: 20111020
  4. AMSULMYLAN [Concomitant]
     Dosage: TOTAL DAILY DOSE : 3  GM
     Route: 041
     Dates: start: 20111110, end: 20111119
  5. NORVASC [Concomitant]
     Dosage: TOTAL DAILY DOSE : 5 MG
     Route: 048
     Dates: start: 20111025, end: 20111113
  6. KEPPRA [Suspect]
     Indication: SIMPLE PARTIAL SEIZURES
     Route: 048
     Dates: start: 20110929, end: 20111119

REACTIONS (2)
  - LUNG NEOPLASM MALIGNANT [None]
  - BRONCHITIS [None]
